FAERS Safety Report 7330706-6 (Version None)
Quarter: 2011Q1

REPORT INFORMATION
  Report Type: 
  Country: None (occurrence: None)
  Receive Date: 20110304
  Receipt Date: 20091230
  Transmission Date: 20110831
  Serious: No
  Sender: FDA-Public Use
  Company Number: US-BAYER-201010249NA

PATIENT
  Sex: Female
  Weight: 88.45 kg

DRUGS (1)
  1. MIRENA [Suspect]
     Indication: CONTRACEPTION
     Dosage: 20 ?G/D, BIW
     Route: 015
     Dates: start: 20091117, end: 20091229

REACTIONS (1)
  - DEVICE EXPULSION [None]
